FAERS Safety Report 22374964 (Version 1)
Quarter: 2023Q2

REPORT INFORMATION
  Report Type: Spontaneous
  Country: US (occurrence: US)
  Receive Date: 20230527
  Receipt Date: 20230527
  Transmission Date: 20230722
  Serious: Yes (Hospitalization, Other)
  Sender: FDA-Public Use
  Company Number: US-NOVITIUMPHARMA-2023USNVP00775

PATIENT
  Sex: Male

DRUGS (1)
  1. HYDROXYCHLOROQUINE SULFATE [Suspect]
     Active Substance: HYDROXYCHLOROQUINE SULFATE
     Indication: Product used for unknown indication

REACTIONS (6)
  - Accidental overdose [Unknown]
  - Lethargy [Unknown]
  - Product administration error [Unknown]
  - Hypokalaemia [Unknown]
  - Electrocardiogram QRS complex prolonged [Recovering/Resolving]
  - Hypotension [Unknown]
